FAERS Safety Report 19423165 (Version 1)
Quarter: 2021Q2

REPORT INFORMATION
  Report Type: Spontaneous
  Country: US (occurrence: US)
  Receive Date: 20210616
  Receipt Date: 20210616
  Transmission Date: 20210717
  Serious: Yes (Hospitalization)
  Sender: FDA-Public Use
  Company Number: None

PATIENT
  Sex: Female

DRUGS (10)
  1. CYCLOBENZAPRINE. [Concomitant]
     Active Substance: CYCLOBENZAPRINE
  2. HYDROMORPHONE [Concomitant]
     Active Substance: HYDROMORPHONE
  3. PEMAZYRE [Concomitant]
     Active Substance: PEMIGATINIB
  4. ENTECAVIR. [Suspect]
     Active Substance: ENTECAVIR
     Indication: HEPATITIS VIRAL
     Route: 048
     Dates: start: 20180205
  5. XARELTO [Concomitant]
     Active Substance: RIVAROXABAN
  6. LIDOCAINE. [Concomitant]
     Active Substance: LIDOCAINE
  7. METHADONE [Concomitant]
     Active Substance: METHADONE HYDROCHLORIDE
  8. PREGABALIN. [Concomitant]
     Active Substance: PREGABALIN
  9. MORPHINE [Concomitant]
     Active Substance: MORPHINE
  10. GABAPENTIN. [Concomitant]
     Active Substance: GABAPENTIN

REACTIONS (1)
  - Syncope [None]
